FAERS Safety Report 6583422-2 (Version None)
Quarter: 2010Q1

REPORT INFORMATION
  Report Type: 
  Country: None (occurrence: None)
  Receive Date: 20100216
  Receipt Date: 20100204
  Transmission Date: 20100710
  Serious: Yes (Hospitalization, Other)
  Sender: FDA-Public Use
  Company Number: JP-ROCHE-646964

PATIENT
  Sex: Male
  Weight: 84 kg

DRUGS (15)
  1. TOCILIZUMAB [Suspect]
     Indication: RHEUMATOID ARTHRITIS
     Route: 041
     Dates: start: 20090114, end: 20090114
  2. TOCILIZUMAB [Suspect]
     Route: 041
     Dates: start: 20090214, end: 20090214
  3. TOCILIZUMAB [Suspect]
     Route: 041
     Dates: start: 20090313, end: 20090313
  4. TOCILIZUMAB [Suspect]
     Route: 041
     Dates: start: 20090608, end: 20090608
  5. TOCILIZUMAB [Suspect]
     Route: 041
     Dates: start: 20090727
  6. PROGRAF [Concomitant]
     Route: 048
  7. ADALAT CC [Concomitant]
     Dosage: FORM: SUSTAINED RELEASE TABLET, DRUG REPORTED AS ADALAT-CR
     Route: 048
  8. MEDROL [Concomitant]
     Route: 048
     Dates: start: 20090121, end: 20090125
  9. MEDROL [Concomitant]
     Route: 048
     Dates: start: 20090126, end: 20090311
  10. MEDROL [Concomitant]
     Route: 048
     Dates: start: 20090312, end: 20090720
  11. CELECOXIB [Concomitant]
     Route: 048
     Dates: start: 20090121
  12. PREDONINE [Concomitant]
     Route: 048
     Dates: end: 20090120
  13. PREDONINE [Concomitant]
     Route: 048
  14. AZATHIOPRINE [Concomitant]
     Dosage: DRUG NAME: UNKNOWN DRUG (AZATHIOPRINE)
     Route: 048
     Dates: end: 20090720
  15. ENBREL [Concomitant]
     Route: 058
     Dates: start: 20090324, end: 20090324

REACTIONS (3)
  - AGRANULOCYTOSIS [None]
  - DRUG INEFFECTIVE [None]
  - RHEUMATOID ARTHRITIS [None]
